FAERS Safety Report 5550954-5 (Version None)
Quarter: 2007Q4

REPORT INFORMATION
  Report Type: 
  Country: None (occurrence: None)
  Receive Date: 20071128
  Receipt Date: 20060206
  Transmission Date: 20080405
  Serious: Yes (Other)
  Sender: FDA-Public Use
  Company Number: 2005170542

PATIENT
  Sex: Female
  Weight: 58.1 kg

DRUGS (1)
  1. LIPITOR [Suspect]
     Indication: BLOOD CHOLESTEROL INCREASED
     Dosage: 10 MG (10 MG, 1 IN 1 D), ORAL
     Route: 048
     Dates: start: 20040201

REACTIONS (6)
  - ERYTHEMA MULTIFORME [None]
  - MYALGIA [None]
  - ORAL HERPES [None]
  - RASH [None]
  - STOMATITIS [None]
  - X-RAY ABNORMAL [None]
